FAERS Safety Report 5515893-4 (Version None)
Quarter: 2007Q4

REPORT INFORMATION
  Report Type: 
  Country: None (occurrence: None)
  Receive Date: 20071114
  Receipt Date: 20071109
  Transmission Date: 20080405
  Serious: Yes (Hospitalization)
  Sender: FDA-Public Use
  Company Number: SE-BAYER-200613108GDS

PATIENT
  Age: 59 Year
  Sex: Female
  Weight: 64 kg

DRUGS (3)
  1. SORAFENIB [Suspect]
     Indication: RENAL CELL CARCINOMA STAGE UNSPECIFIED
     Route: 048
     Dates: start: 20060614, end: 20060717
  2. PANTOPRAZOLE SODIUM [Concomitant]
     Indication: OESOPHAGEAL ULCER
     Route: 048
     Dates: start: 20060629, end: 20060719
  3. CITALOPRAM HYDROBROMIDE [Concomitant]
     Indication: ANXIETY
     Route: 048

REACTIONS (3)
  - ANOREXIA [None]
  - CHEST PAIN [None]
  - FATIGUE [None]
